FAERS Safety Report 6120052-0 (Version None)
Quarter: 2009Q1

REPORT INFORMATION
  Report Type: 
  Country: None (occurrence: None)
  Receive Date: 20090316
  Receipt Date: 20090308
  Transmission Date: 20090719
  Serious: Yes (Hospitalization)
  Sender: FDA-Public Use
  Company Number: US-AMGEN-QUU337488

PATIENT
  Sex: Female

DRUGS (1)
  1. ENBREL [Suspect]
     Indication: RHEUMATOID ARTHRITIS
     Route: 058
     Dates: start: 20030101

REACTIONS (5)
  - FALL [None]
  - FEMUR FRACTURE [None]
  - NECK PAIN [None]
  - PAIN IN EXTREMITY [None]
  - URINARY TRACT INFECTION [None]
